FAERS Safety Report 15352654 (Version 1)
Quarter: 2018Q3

REPORT INFORMATION
  Report Type: Spontaneous
  Country: None (occurrence: US)
  Receive Date: 20180905
  Receipt Date: 20180905
  Transmission Date: 20181010
  Serious: No
  Sender: FDA-Public Use
  Company Number: US-MEDAC PHARMA, INC.-2054638

PATIENT
  Age: 59 Year
  Sex: Female

DRUGS (1)
  1. RASUVO [Suspect]
     Active Substance: METHOTREXATE SODIUM
     Indication: RHEUMATOID ARTHRITIS
     Dates: start: 20180807

REACTIONS (3)
  - Vision blurred [Unknown]
  - Gastrooesophageal reflux disease [Not Recovered/Not Resolved]
  - Heat stroke [Recovered/Resolved]

NARRATIVE: CASE EVENT DATE: 20180807
